FAERS Safety Report 4735314-9 (Version None)
Quarter: 2005Q3

REPORT INFORMATION
  Report Type: 
  Country: None (occurrence: None)
  Receive Date: 20050803
  Receipt Date: 20050714
  Transmission Date: 20060218
  Serious: Yes (Disabling, Other)
  Sender: FDA-Public Use
  Company Number: USA0507102811

PATIENT
  Age: 71 Year
  Sex: Female
  Weight: 56 kg

DRUGS (4)
  1. HUMULIN N [Suspect]
     Indication: DIABETES MELLITUS
     Dosage: 10 U DAY
     Dates: start: 19960101
  2. HUMULIN R [Suspect]
     Indication: DIABETES MELLITUS
     Dates: start: 19960101
  3. INSULIN [Suspect]
     Indication: DIABETES MELLITUS
  4. EPOETIN NOS [Concomitant]

REACTIONS (10)
  - BLOOD CHOLESTEROL INCREASED [None]
  - BLOOD TRIGLYCERIDES INCREASED [None]
  - CATARACT OPERATION [None]
  - DIALYSIS [None]
  - MALAISE [None]
  - MUSCLE INJURY [None]
  - POST PROCEDURAL COMPLICATION [None]
  - RENAL FAILURE [None]
  - RENAL TRANSPLANT [None]
  - VISUAL DISTURBANCE [None]
